FAERS Safety Report 11888138 (Version 1)
Quarter: 2016Q1

REPORT INFORMATION
  Report Type: Spontaneous
  Country: US (occurrence: None)
  Receive Date: 20160104
  Receipt Date: 20160104
  Transmission Date: 20160526
  Serious: Yes (Other)
  Sender: FDA-Public Use
  Company Number: None

PATIENT
  Age: 65 Year
  Sex: Female
  Weight: 72.58 kg

DRUGS (4)
  1. MIRTAZAPINE 15 MG APOTEX [Suspect]
     Active Substance: MIRTAZAPINE
     Indication: INSOMNIA
     Route: 048
     Dates: start: 20151003, end: 20151004
  2. RISPERIDONE. [Concomitant]
     Active Substance: RISPERIDONE
  3. FLUOXETINE [Concomitant]
     Active Substance: FLUOXETINE HYDROCHLORIDE
  4. DIVALPROEXER [Concomitant]

REACTIONS (5)
  - Asthenia [None]
  - Pallor [None]
  - Hyporesponsive to stimuli [None]
  - Mobility decreased [None]
  - Confusional state [None]

NARRATIVE: CASE EVENT DATE: 20151003
